FAERS Safety Report 5574564-9 (Version None)
Quarter: 2007Q4

REPORT INFORMATION
  Report Type: 
  Country: None (occurrence: None)
  Receive Date: 20071227
  Receipt Date: 20071217
  Transmission Date: 20080405
  Serious: Yes (Hospitalization)
  Sender: FDA-Public Use
  Company Number: IE-SANOFI-SYNTHELABO-A01200714195

PATIENT

DRUGS (1)
  1. ZOLPIDEM [Suspect]
     Indication: DRUG ABUSER
     Route: 042

REACTIONS (3)
  - INCORRECT ROUTE OF DRUG ADMINISTRATION [None]
  - PAIN [None]
  - SKIN NECROSIS [None]
